FAERS Safety Report 16803582 (Version 1)
Quarter: 2019Q3

REPORT INFORMATION
  Report Type: Spontaneous
  Country: US (occurrence: US)
  Receive Date: 20190913
  Receipt Date: 20190913
  Transmission Date: 20191005
  Serious: Yes (Hospitalization)
  Sender: FDA-Public Use
  Company Number: US-ZYDUS-040657

PATIENT
  Age: 79 Year
  Sex: Male

DRUGS (2)
  1. TADALAFIL. [Concomitant]
     Active Substance: TADALAFIL
     Indication: PULMONARY ARTERIAL HYPERTENSION
     Route: 065
  2. BOSENTAN. [Suspect]
     Active Substance: BOSENTAN
     Indication: PULMONARY ARTERIAL HYPERTENSION
     Route: 048
     Dates: start: 20190807

REACTIONS (7)
  - Blood pressure increased [Unknown]
  - Hyperhidrosis [Unknown]
  - Night sweats [Unknown]
  - Chills [Unknown]
  - Dyspnoea [Unknown]
  - Oedema [Unknown]
  - Asthenia [Unknown]

NARRATIVE: CASE EVENT DATE: 2019
